FAERS Safety Report 4311420-8 (Version None)
Quarter: 2004Q1

REPORT INFORMATION
  Report Type: 
  Country: None (occurrence: None)
  Receive Date: 20040302
  Receipt Date: 20040217
  Transmission Date: 20041129
  Serious: Yes (Hospitalization, Other)
  Sender: FDA-Public Use
  Company Number: 190310

PATIENT
  Age: 52 Year
  Sex: Male

DRUGS (15)
  1. AVONEX [Suspect]
     Indication: MULTIPLE SCLEROSIS
     Dosage: 30 MCG QW IM
     Dates: start: 20020403
  2. ASPIRIN [Concomitant]
  3. PLAVIX [Concomitant]
  4. FOLIC ACID [Concomitant]
  5. RANITIDINE [Concomitant]
  6. NIFEDIPINE [Concomitant]
  7. NORTRIPTYLINE HCL [Concomitant]
  8. ANAGRELIDE HCL [Concomitant]
  9. SIMVASTATIN [Concomitant]
  10. PAROXETINE HCL [Concomitant]
  11. VITAMIN B-12 [Concomitant]
  12. OXYCONTIN [Concomitant]
  13. ALPRAZOLAM [Concomitant]
  14. HYDROCODONE [Concomitant]
  15. FENTANYL [Concomitant]

REACTIONS (7)
  - CARDIAC MURMUR [None]
  - CHRONIC OBSTRUCTIVE AIRWAYS DISEASE [None]
  - HIGH DENSITY LIPOPROTEIN DECREASED [None]
  - HYPERLIPIDAEMIA [None]
  - HYPERTENSION [None]
  - MYOCARDIAL INFARCTION [None]
  - RENAL FAILURE [None]
